FAERS Safety Report 7528426-8 (Version None)
Quarter: 2011Q2

REPORT INFORMATION
  Report Type: 
  Country: None (occurrence: None)
  Receive Date: 20110607
  Receipt Date: 20101123
  Transmission Date: 20111010
  Serious: No
  Sender: FDA-Public Use
  Company Number: US-ASTRAZENECA-2010SE57216

PATIENT
  Sex: Female

DRUGS (4)
  1. ALLERGY MEDICATION [Concomitant]
  2. ANTIHYPERTENSIVES [Concomitant]
  3. PRILOSEC OTC [Suspect]
     Route: 048
     Dates: start: 20101112, end: 20101122
  4. CARDIAC THERAPY [Suspect]
     Route: 048

REACTIONS (3)
  - INAPPROPRIATE SCHEDULE OF DRUG ADMINISTRATION [None]
  - VISION BLURRED [None]
  - DIZZINESS [None]
